FAERS Safety Report 11759844 (Version 1)
Quarter: 2015Q4

REPORT INFORMATION
  Report Type: Spontaneous
  Country: US (occurrence: US)
  Receive Date: 20151120
  Receipt Date: 20151120
  Transmission Date: 20160304
  Serious: Yes (Hospitalization)
  Sender: FDA-Public Use
  Company Number: US-ABBVIE-08P-163-0789161-00

PATIENT
  Age: 55 Year
  Sex: Male
  Weight: 96 kg

DRUGS (12)
  1. ARIMIDEX [Suspect]
     Active Substance: ANASTROZOLE
     Indication: HORMONE SUPPRESSION THERAPY
     Dosage: DAILY DOSE:  UNKNOWN
     Route: 048
     Dates: end: 20071211
  2. ANDROGEL [Suspect]
     Active Substance: TESTOSTERONE
     Indication: BLOOD TESTOSTERONE DECREASED
     Dosage: DAILY DOSE:  UNKNOWN
     Route: 062
     Dates: start: 2006, end: 2006
  3. ANDROGEL [Suspect]
     Active Substance: TESTOSTERONE
     Dosage: DAILY DOSE: 10 GRAM(S)
     Route: 062
     Dates: start: 2008
  4. AVODART [Suspect]
     Active Substance: DUTASTERIDE
     Dosage: DAILY DOSE: 1 DOSAGE FORM
     Route: 048
     Dates: end: 20071211
  5. ARIMIDEX [Suspect]
     Active Substance: ANASTROZOLE
     Dosage: DAILY DOSE: 2 DOSAGE FORM
     Route: 048
  6. ANDROGEL [Suspect]
     Active Substance: TESTOSTERONE
     Dosage: DAILY DOSE: REDUCED DOSE OVER A FEW WEEKS
     Route: 062
  7. LIPITOR [Concomitant]
     Active Substance: ATORVASTATIN CALCIUM
     Indication: HYPERLIPIDAEMIA
     Dosage: DAILY DOSE: 10 MILLIGRAM(S)
     Route: 048
  8. ANDROGEL [Suspect]
     Active Substance: TESTOSTERONE
     Dosage: DAILY DOSE: 5 GRAM(S)
     Route: 062
     Dates: end: 20071211
  9. AVODART [Suspect]
     Active Substance: DUTASTERIDE
     Dosage: DAILY DOSE: 2 DOSAGE FORM
     Route: 048
  10. ANDROGEL [Suspect]
     Active Substance: TESTOSTERONE
     Dosage: DAILY DOSE: 15 GRAM(S)
     Route: 062
  11. AVODART [Suspect]
     Active Substance: DUTASTERIDE
     Indication: HORMONE SUPPRESSION THERAPY
     Dosage: DAILY DOSE:  UNKNOWN
     Route: 048
     Dates: end: 20071211
  12. ARIMIDEX [Suspect]
     Active Substance: ANASTROZOLE
     Dosage: DAILY DOSE: 1 DOSAGE FORM
     Route: 048
     Dates: end: 20071211

REACTIONS (14)
  - Thrombosis [Unknown]
  - Mesenteric vein thrombosis [Recovered/Resolved]
  - White blood cell count increased [Recovered/Resolved]
  - Mesenteric vascular insufficiency [Recovered/Resolved]
  - Pyrexia [Recovered/Resolved]
  - Oral candidiasis [Unknown]
  - Ileus paralytic [Unknown]
  - Pleural effusion [Unknown]
  - Anaemia [Recovered/Resolved]
  - Portal vein thrombosis [Recovered/Resolved]
  - Gastritis [Unknown]
  - Blood testosterone increased [Recovered/Resolved]
  - Hypercoagulation [Recovered/Resolved]
  - Gastrooesophageal reflux disease [Unknown]

NARRATIVE: CASE EVENT DATE: 20061211
